FAERS Safety Report 16405453 (Version 1)
Quarter: 2019Q2

REPORT INFORMATION
  Report Type: Spontaneous
  Country: US (occurrence: US)
  Receive Date: 20190607
  Receipt Date: 20190607
  Transmission Date: 20190711
  Serious: Yes (Other)
  Sender: FDA-Public Use
  Company Number: US-HIKMA PHARMACEUTICALS USA INC.-US-H14001-19-03736

PATIENT
  Age: 53 Year
  Sex: Female
  Weight: 149.82 kg

DRUGS (2)
  1. BUPIVACAINE. [Suspect]
     Active Substance: BUPIVACAINE
     Indication: SPINAL PAIN
     Route: 037
  2. INFUMORPH [Suspect]
     Active Substance: MORPHINE SULFATE
     Indication: SPINAL PAIN
     Route: 037

REACTIONS (5)
  - Poisoning [Unknown]
  - Gastroenteritis viral [Unknown]
  - Acute kidney injury [Unknown]
  - Overdose [Unknown]
  - Dehydration [Unknown]

NARRATIVE: CASE EVENT DATE: 20190522
